FAERS Safety Report 19350356 (Version 2)
Quarter: 2021Q3

REPORT INFORMATION
  Report Type: Report from Study
  Country: JP (occurrence: JP)
  Receive Date: 20210531
  Receipt Date: 20210714
  Transmission Date: 20211014
  Serious: Yes (Hospitalization, Other)
  Sender: FDA-Public Use
  Company Number: JP-ALXN-A202015713AA

PATIENT
  Age: 71 Year
  Sex: Male
  Weight: 61 kg

DRUGS (45)
  1. NOVOLIN R [Concomitant]
     Active Substance: INSULIN HUMAN
     Dosage: 2 IU, QD
     Route: 065
     Dates: start: 20200622, end: 20200622
  2. LANSOPRAZOLE. [Concomitant]
     Active Substance: LANSOPRAZOLE
     Indication: PROPHYLAXIS
     Dosage: 15 MG, QD
     Route: 048
     Dates: start: 20200630, end: 20200720
  3. COLCHICINE. [Suspect]
     Active Substance: COLCHICINE
     Indication: PROPHYLAXIS
     Dosage: 0.5 MG, BID
     Route: 048
     Dates: start: 20200702, end: 20200824
  4. DRUG NOT ADMINISTERED [Concomitant]
     Active Substance: UNSPECIFIED INGREDIENT
     Indication: PROPHYLAXIS
     Dosage: 20 MG, QD
     Route: 048
     Dates: start: 20200622, end: 20200629
  5. ELIQUIS [Concomitant]
     Active Substance: APIXABAN
     Indication: ATRIAL FIBRILLATION
     Dosage: 10 MG, BID
     Route: 048
     Dates: start: 20170310, end: 20200618
  6. CEFCAPENE PIVOXIL HYDROCHLORIDE [Concomitant]
     Active Substance: CEFCAPENE PIVOXIL HYDROCHLORIDE
     Indication: PROPHYLAXIS
     Dosage: 100 MG, TID
     Route: 048
     Dates: start: 20200824, end: 20200828
  7. ULTOMIRIS [Suspect]
     Active Substance: RAVULIZUMAB-CWVZ
     Indication: PAROXYSMAL NOCTURNAL HAEMOGLOBINURIA
     Dosage: 2700 MG, SINGLE
     Route: 042
     Dates: start: 20191108, end: 20191108
  8. SPIRONOLACTONE. [Concomitant]
     Active Substance: SPIRONOLACTONE
     Indication: HYPERTENSION
     Dosage: 25 MG, QD
     Route: 048
     Dates: start: 20170617, end: 20200618
  9. NOVOLIN R [Concomitant]
     Active Substance: INSULIN HUMAN
     Dosage: 5 IU, QD
     Route: 065
     Dates: start: 20200620, end: 20200620
  10. ONEALFA [Concomitant]
     Active Substance: ALFACALCIDOL
     Indication: DIABETES MELLITUS
     Dosage: 1 ?G, QD
     Route: 048
     Dates: start: 20161028, end: 20200618
  11. VITAMEDIN                          /00274301/ [Concomitant]
     Active Substance: BENFOTIAMINE\CYANOCOBALAMIN\PYRIDOXINE HYDROCHLORIDE
     Indication: PROPHYLAXIS
     Dosage: 1 DF, QD
     Route: 065
     Dates: start: 20200619, end: 20200619
  12. AMLODIPINE [Concomitant]
     Active Substance: AMLODIPINE BESYLATE
     Dosage: 10 MG, QD
     Route: 048
     Dates: start: 20200624, end: 20200821
  13. AMLODIPINE [Concomitant]
     Active Substance: AMLODIPINE BESYLATE
     Dosage: 2.5 MG, QD
     Route: 048
     Dates: start: 20200822
  14. CARBOCISTEINE [Concomitant]
     Active Substance: CARBOCYSTEINE
     Indication: PROPHYLAXIS
     Dosage: 500 MG, TID
     Route: 048
     Dates: start: 20200624, end: 20200705
  15. REPAGLINIDE. [Concomitant]
     Active Substance: REPAGLINIDE
     Indication: DIABETES MELLITUS
     Dosage: 0.5 MG, TID
     Route: 048
     Dates: start: 20201017
  16. PREDONINE [Concomitant]
     Active Substance: PREDNISOLONE
     Indication: PAROXYSMAL NOCTURNAL HAEMOGLOBINURIA
     Dosage: 5 MG, QD
     Route: 048
     Dates: start: 20180119
  17. ZALUTIA [Concomitant]
     Active Substance: TADALAFIL
     Indication: BENIGN PROSTATIC HYPERPLASIA
     Dosage: 2.5 MG, QD
     Route: 048
     Dates: start: 20150724, end: 20200618
  18. TAKEPRON [Concomitant]
     Active Substance: LANSOPRAZOLE
     Indication: PROPHYLAXIS
     Dosage: 30 MG, QD
     Route: 042
     Dates: start: 20200618, end: 20200618
  19. TAKEPRON [Concomitant]
     Active Substance: LANSOPRAZOLE
     Dosage: 30 MG, QD
     Route: 042
     Dates: start: 20200622, end: 20200622
  20. FENTANYL. [Concomitant]
     Active Substance: FENTANYL
     Indication: PAIN
     Dosage: 0.5 MG, QD
     Route: 065
     Dates: start: 20200618, end: 20200619
  21. SUREPOST [Concomitant]
     Active Substance: REPAGLINIDE
     Dosage: 1 MG, TID
     Route: 048
     Dates: start: 20200625, end: 20200720
  22. PROPETO [Concomitant]
     Active Substance: PETROLATUM
     Indication: DRY SKIN PROPHYLAXIS
     Dosage: APPROPRIATE AMOUNT, PRN
     Dates: start: 20200620, end: 20200628
  23. STARSIS [Concomitant]
     Active Substance: NATEGLINIDE
     Indication: DIABETES MELLITUS
     Dosage: 90 MG, TID
     Route: 048
     Dates: start: 20200721, end: 20201016
  24. NEXIUM [Concomitant]
     Active Substance: ESOMEPRAZOLE MAGNESIUM
     Indication: PROPHYLAXIS
     Dosage: 20 MG, QD
     Route: 048
     Dates: start: 20200721
  25. ULTOMIRIS [Suspect]
     Active Substance: RAVULIZUMAB-CWVZ
     Dosage: 3300 MG, Q8W
     Route: 042
     Dates: start: 20191122
  26. SPIRONOLACTONE. [Concomitant]
     Active Substance: SPIRONOLACTONE
     Indication: PERICARDIAL EFFUSION
     Dosage: 25 MG, QD
     Route: 048
     Dates: start: 20200624
  27. TAKEPRON [Concomitant]
     Active Substance: LANSOPRAZOLE
     Dosage: 30 MG, BID
     Route: 042
     Dates: start: 20200619, end: 20200621
  28. SUREPOST [Concomitant]
     Active Substance: REPAGLINIDE
     Indication: DIABETES MELLITUS
     Dosage: 3 MG, TID
     Route: 048
     Dates: start: 20171206, end: 20200618
  29. ALFACALCIDOL [Concomitant]
     Active Substance: ALFACALCIDOL
     Indication: PROPHYLAXIS
     Dosage: 1 ?G, QD
     Route: 048
     Dates: start: 20200624
  30. ZALUTIA [Concomitant]
     Active Substance: TADALAFIL
     Dosage: 2.5 MG, QD
     Route: 048
     Dates: start: 20200822
  31. NOVOLIN R [Concomitant]
     Active Substance: INSULIN HUMAN
     Indication: DIABETES MELLITUS
     Dosage: 10 IU, QD
     Route: 065
     Dates: start: 20200620, end: 20200620
  32. AVOLVE [Concomitant]
     Active Substance: DUTASTERIDE
     Indication: BENIGN PROSTATIC HYPERPLASIA
     Dosage: 0.5 MG, QD
     Route: 048
     Dates: start: 20200706, end: 20200821
  33. AMLODIPINE [Concomitant]
     Active Substance: AMLODIPINE BESYLATE
     Indication: HYPERTENSION
     Dosage: 10 MG, QD
     Route: 048
     Dates: start: 20170510, end: 20200618
  34. SOLIRIS [Concomitant]
     Active Substance: ECULIZUMAB
     Indication: PAROXYSMAL NOCTURNAL HAEMOGLOBINURIA
     Dosage: UNK
     Route: 042
     Dates: start: 20110112
  35. SOLIRIS [Concomitant]
     Active Substance: ECULIZUMAB
     Dosage: 900 MG, Q2W
     Route: 042
     Dates: end: 20191025
  36. NOVORAPID [Concomitant]
     Active Substance: INSULIN ASPART
     Indication: DIABETES MELLITUS
     Dosage: 3 IU, QD
     Route: 065
     Dates: start: 20200620, end: 20200620
  37. FENTANYL. [Concomitant]
     Active Substance: FENTANYL
     Dosage: 0.5 MG, BID
     Route: 065
     Dates: start: 20200620, end: 20200622
  38. THYRADIN S [Concomitant]
     Active Substance: LEVOTHYROXINE SODIUM
     Indication: HYPOTHYROIDISM
     Dosage: 25 ?G, QD
     Route: 048
     Dates: start: 20190403, end: 20210326
  39. PRIMOBOLAN                         /00044802/ [Concomitant]
     Indication: PAROXYSMAL NOCTURNAL HAEMOGLOBINURIA
     Dosage: 15 MG, QD
     Route: 048
     Dates: start: 20190412
  40. NOVOLIN R [Concomitant]
     Active Substance: INSULIN HUMAN
     Dosage: 15 IU, QD
     Route: 065
     Dates: start: 20200621, end: 20200621
  41. NOVOLIN R [Concomitant]
     Active Substance: INSULIN HUMAN
     Dosage: 4 IU, QD
     Route: 065
     Dates: start: 20200621, end: 20200621
  42. NOVOLIN R [Concomitant]
     Active Substance: INSULIN HUMAN
     Dosage: 10 IU, QD
     Route: 065
     Dates: start: 20200622, end: 20200622
  43. NOVOLIN R [Concomitant]
     Active Substance: INSULIN HUMAN
     Dosage: 15 ML, QD
     Route: 065
     Dates: start: 20200623, end: 20200624
  44. ELIQUIS [Concomitant]
     Active Substance: APIXABAN
     Dosage: 5 MG, BID
     Route: 048
     Dates: start: 20200625, end: 20200821
  45. ELIQUIS [Concomitant]
     Active Substance: APIXABAN
     Dosage: 2.5 MG, BID
     Route: 048
     Dates: start: 20200822

REACTIONS (11)
  - Pericardial effusion [Recovering/Resolving]
  - Anaemia [Recovering/Resolving]
  - Hypothyroidism [Recovering/Resolving]
  - Constipation [Recovering/Resolving]
  - Sputum retention [Recovering/Resolving]
  - Penile ulceration [Recovering/Resolving]
  - Fall [Recovered/Resolved]
  - Condition aggravated [Recovering/Resolving]
  - Insomnia [Recovering/Resolving]
  - Radius fracture [Recovering/Resolving]
  - Peroneal nerve palsy [Not Recovered/Not Resolved]

NARRATIVE: CASE EVENT DATE: 20200618
